FAERS Safety Report 5884091-7 (Version None)
Quarter: 2008Q3

REPORT INFORMATION
  Report Type: 
  Country: None (occurrence: None)
  Receive Date: 20080915
  Receipt Date: 20080903
  Transmission Date: 20090109
  Serious: Yes (Hospitalization)
  Sender: FDA-Public Use
  Company Number: RU-BRISTOL-MYERS SQUIBB COMPANY-14323455

PATIENT
  Age: 62 Year
  Sex: Female

DRUGS (7)
  1. ABATACEPT [Suspect]
     Indication: RHEUMATOID ARTHRITIS
     Dosage: NO. OF COURSES:10.
     Dates: start: 20030527
  2. MOVALIS [Concomitant]
     Dates: start: 20020614
  3. OMEPRAZOLE [Concomitant]
  4. RANITIDINE [Concomitant]
  5. ATENOLOL [Concomitant]
  6. ENALAPRIL MALEATE [Concomitant]
  7. METHYLPREDNISOLONE 16MG TAB [Concomitant]

REACTIONS (1)
  - KAPOSI'S SARCOMA [None]
